FAERS Safety Report 8259146-2 (Version None)
Quarter: 2012Q2

REPORT INFORMATION
  Report Type: 
  Country: None (occurrence: None)
  Receive Date: 20120404
  Receipt Date: 20120320
  Transmission Date: 20120825
  Serious: Yes (Other)
  Sender: FDA-Public Use
  Company Number: CHPA2012US005395

PATIENT
  Age: 87 Year
  Sex: Male

DRUGS (2)
  1. KONSYL [Concomitant]
     Indication: CONSTIPATION
     Dosage: UNK, UNK
     Dates: end: 20120317
  2. BENEFIBER W/ WHEAT DEXTRIN [Suspect]
     Indication: IRRITABLE BOWEL SYNDROME
     Dosage: 2 TSP, BID
     Route: 048
     Dates: start: 20080101

REACTIONS (5)
  - INTERVERTEBRAL DISC PROTRUSION [None]
  - DIARRHOEA [None]
  - OFF LABEL USE [None]
  - CONCOMITANT DISEASE AGGRAVATED [None]
  - SCIATICA [None]
